FAERS Safety Report 22587692 (Version 4)
Quarter: 2024Q4

REPORT INFORMATION
  Report Type: Spontaneous
  Country: PT (occurrence: PT)
  Receive Date: 20230612
  Receipt Date: 20241212
  Transmission Date: 20250115
  Serious: Yes (Death, Life-Threatening, Hospitalization, Other)
  Sender: AUROBINDO
  Company Number: PT-AUROBINDO-AUR-APL-2023-041473

PATIENT
  Age: 65 Year
  Sex: Female

DRUGS (2)
  1. CAPECITABINE [Suspect]
     Active Substance: CAPECITABINE
     Indication: Chemotherapy
     Dosage: 1ST DOSE
     Route: 065
     Dates: start: 20220927
  2. CAPECITABINE [Suspect]
     Active Substance: CAPECITABINE
     Indication: Breast cancer

REACTIONS (10)
  - Stomatitis [Fatal]
  - Hypovolaemic shock [Fatal]
  - Multiple organ dysfunction syndrome [Fatal]
  - Pancytopenia [Fatal]
  - Pain [Fatal]
  - Abdominal pain [Not Recovered/Not Resolved]
  - Odynophagia [Not Recovered/Not Resolved]
  - Nausea [Not Recovered/Not Resolved]
  - Food refusal [Not Recovered/Not Resolved]
  - Vomiting [Not Recovered/Not Resolved]

NARRATIVE: CASE EVENT DATE: 20161016
